FAERS Safety Report 7824660-8 (Version None)
Quarter: 2011Q4

REPORT INFORMATION
  Report Type: 
  Country: None (occurrence: None)
  Receive Date: 20111019
  Receipt Date: 20111006
  Transmission Date: 20120403
  Serious: Yes (Other)
  Sender: FDA-Public Use
  Company Number: PHHY2011FR65903

PATIENT
  Sex: Female

DRUGS (4)
  1. ZOCOR [Concomitant]
  2. ESCITALOPRAM [Concomitant]
  3. PREVISCAN [Concomitant]
  4. RASILEZ HCT [Suspect]
     Indication: HYPERTENSION
     Dosage: 300/12.5 MG
     Dates: start: 20110716

REACTIONS (6)
  - FISTULA [None]
  - ANORECTAL DISCOMFORT [None]
  - ABDOMINAL PAIN UPPER [None]
  - DIARRHOEA [None]
  - COLITIS [None]
  - DIVERTICULITIS [None]
